FAERS Safety Report 24582165 (Version 3)
Quarter: 2025Q1

REPORT INFORMATION
  Report Type: Report from Study
  Country: US (occurrence: US)
  Receive Date: 20241105
  Receipt Date: 20250128
  Transmission Date: 20250408
  Serious: Yes (Other)
  Sender: ABBVIE
  Company Number: US-ABBVIE-5870335

PATIENT
  Age: 60 Year
  Sex: Male

DRUGS (1)
  1. RINVOQ [Suspect]
     Active Substance: UPADACITINIB
     Indication: Dermatitis atopic
     Route: 048
     Dates: start: 20240508

REACTIONS (11)
  - Blindness [Recovering/Resolving]
  - Visual impairment [Unknown]
  - Feeling hot [Not Recovered/Not Resolved]
  - Fatigue [Unknown]
  - Myopia [Not Recovered/Not Resolved]
  - Eye pruritus [Not Recovered/Not Resolved]
  - Foreign body sensation in eyes [Not Recovered/Not Resolved]
  - Nasopharyngitis [Unknown]
  - Dermatitis atopic [Not Recovered/Not Resolved]
  - Swelling face [Unknown]
  - Skin fissures [Unknown]

NARRATIVE: CASE EVENT DATE: 20240101
